FAERS Safety Report 5058464-9 (Version None)
Quarter: 2006Q3

REPORT INFORMATION
  Report Type: 
  Country: None (occurrence: None)
  Receive Date: 20060721
  Receipt Date: 20060711
  Transmission Date: 20061208
  Serious: Yes (Other)
  Sender: FDA-Public Use
  Company Number: CA-JNJFOC-20060702112

PATIENT
  Sex: Female

DRUGS (7)
  1. REMICADE [Suspect]
     Route: 042
  2. REMICADE [Suspect]
     Indication: RHEUMATOID ARTHRITIS
     Route: 042
  3. STATEX [Concomitant]
  4. OXYCONTIN [Concomitant]
  5. ALTACE [Concomitant]
  6. AMYTRIPTYLINE [Concomitant]
  7. HYDROCHLOROTHYAZIDE [Concomitant]

REACTIONS (4)
  - CHEST PAIN [None]
  - INFUSION RELATED REACTION [None]
  - PAIN IN JAW [None]
  - PHARYNGOLARYNGEAL PAIN [None]
